FAERS Safety Report 21433930 (Version 1)
Quarter: 2022Q4

REPORT INFORMATION
  Report Type: Spontaneous
  Country: DE (occurrence: DE)
  Receive Date: 20221010
  Receipt Date: 20221010
  Transmission Date: 20230113
  Serious: Yes (Life-Threatening, Hospitalization)
  Sender: FDA-Public Use
  Company Number: DE-ADRED-08247-01

PATIENT
  Age: 72 Year
  Sex: Male
  Weight: 89 kg

DRUGS (13)
  1. METFORMIN HYDROCHLORIDE\SITAGLIPTIN PHOSPHATE [Suspect]
     Active Substance: METFORMIN HYDROCHLORIDE\SITAGLIPTIN PHOSPHATE
     Dosage: 1000|50 MG, 1-0-1-0
  2. KALINOR-RETARD P [Concomitant]
     Dosage: 1-0-1-0, CAPSULES
  3. SIC-OPHTAL N [Concomitant]
     Dosage: 3.2 MG, 1-0-1-0, EYE DROPS
     Route: 047
  4. METOPROLOL [Concomitant]
     Active Substance: METOPROLOL
     Dosage: 50 MG, 1-1-1-0
  5. AZOPT [BRINZOLAMIDE] [Concomitant]
     Dosage: 10 MG, 1-0-1-0, EYE DROPS
     Route: 047
  6. PANTOPRAZOLE [Concomitant]
     Active Substance: PANTOPRAZOLE
     Dosage: 20 MG, 1-0-0-0
  7. ASPIRIN [Concomitant]
     Active Substance: ASPIRIN
     Dosage: 100 MG, 0-1-0-0
  8. AMILORID COMP. [Concomitant]
     Dosage: 5|50 MG, 0-1-0-0
  9. LAVENDER OIL [Concomitant]
     Active Substance: LAVENDER OIL
     Dosage: 80 MG, REQUIREMENT
  10. Glycerol trinitrate [Concomitant]
     Dosage: 0.4 MG, NEED, SPRAY
  11. VITAMIN B COMPLEX NOS [Concomitant]
     Active Substance: CYANOCOBALAMIN\PYRIDOXINE HYDROCHLORIDE\RIBOFLAVIN\SODIUM PANTOTHENATE\THIAMINE HYDROCHLORIDE\VITAMI
     Dosage: 0-1-0-0
  12. MAGNESIUM [Concomitant]
     Active Substance: MAGNESIUM
     Dosage: 2X PER DAY, CAPSULES
  13. QUININE SULFATE [Concomitant]
     Active Substance: QUININE SULFATE
     Dosage: REQUIREMENT

REACTIONS (8)
  - Tachypnoea [Unknown]
  - Abdominal pain [Unknown]
  - Constipation [Unknown]
  - Heart rate decreased [Unknown]
  - Metabolic acidosis [Unknown]
  - Cardiovascular insufficiency [Unknown]
  - Hyperkalaemia [Unknown]
  - Hypotension [Unknown]
